FAERS Safety Report 13827876 (Version 6)
Quarter: 2018Q2

REPORT INFORMATION
  Report Type: Report from Study
  Country: US (occurrence: US)
  Receive Date: 20170803
  Receipt Date: 20180521
  Transmission Date: 20180711
  Serious: Yes (Other)
  Sender: FDA-Public Use
  Company Number: PHEH2017US023961

PATIENT
  Sex: Female

DRUGS (1)
  1. TRAVATAN Z [Suspect]
     Active Substance: TRAVOPROST
     Indication: GLAUCOMA
     Dosage: UNK GTT, QHS
     Route: 065
     Dates: start: 20170221

REACTIONS (3)
  - Spinal fracture [Unknown]
  - Glaucoma [Unknown]
  - Hypoacusis [Unknown]
